FAERS Safety Report 5658312-X (Version None)
Quarter: 2008Q1

REPORT INFORMATION
  Report Type: 
  Country: None (occurrence: None)
  Receive Date: 20080310
  Receipt Date: 20070314
  Transmission Date: 20080703
  Serious: Yes (Other)
  Sender: FDA-Public Use
  Company Number: US-BAYER-200710250BCC

PATIENT
  Age: 76 Year
  Sex: Male
  Weight: 88 kg

DRUGS (3)
  1. ALEVE [Suspect]
     Indication: PROCEDURAL PAIN
     Dosage: UNIT DOSE: 220 MG
     Route: 048
     Dates: start: 20020101, end: 20040101
  2. ATENOLOL [Concomitant]
  3. LIPITOR [Concomitant]

REACTIONS (2)
  - GASTRIC ULCER [None]
  - HAEMORRHAGE [None]
